FAERS Safety Report 24775607 (Version 1)
Quarter: 2024Q4

REPORT INFORMATION
  Report Type: Spontaneous
  Country: US (occurrence: US)
  Receive Date: 20241226
  Receipt Date: 20241226
  Transmission Date: 20250115
  Serious: Yes (Other)
  Sender: SPRINGWORKS THERAPEUTIC
  Company Number: US-SPRINGWORKS THERAPEUTICS-SW-002232

PATIENT
  Sex: Female

DRUGS (2)
  1. OGSIVEO [Suspect]
     Active Substance: NIROGACESTAT HYDROBROMIDE
     Indication: Desmoid tumour
     Dosage: UNK
     Route: 048
  2. OGSIVEO [Suspect]
     Active Substance: NIROGACESTAT HYDROBROMIDE
     Dosage: 100 MILLIGRAM, BID
     Route: 048

REACTIONS (7)
  - Cardiac failure [Unknown]
  - Myocardial infarction [Unknown]
  - Anaemia [Unknown]
  - Troponin increased [Unknown]
  - Left ventricular dysfunction [Unknown]
  - Hypoperfusion [Unknown]
  - Diarrhoea [Recovering/Resolving]
